FAERS Safety Report 4547995-3 (Version None)
Quarter: 2004Q4

REPORT INFORMATION
  Report Type: 
  Country: None (occurrence: None)
  Receive Date: 20041227
  Receipt Date: 20040921
  Transmission Date: 20050328
  Serious: No
  Sender: FDA-Public Use
  Company Number: 04P-163-0273957-00

PATIENT
  Age: 52 Year
  Sex: Female
  Weight: 111 kg

DRUGS (17)
  1. HUMIRA [Suspect]
     Indication: RHEUMATOID ARTHRITIS
     Dosage: 40 MG, 1 IN 2 WK, SUBCUTANEOUS
     Route: 058
     Dates: start: 20040811
  2. CELECOXIB [Concomitant]
  3. PREDNISONE [Concomitant]
  4. METHOTREXATE SODIUM [Concomitant]
  5. NOVOLIN 20/80 [Concomitant]
  6. ISOPHANE INSULIN [Concomitant]
  7. CARVEDILOL [Concomitant]
  8. MAGNESIUM OXIDE [Concomitant]
  9. SPIRONOLACTONE [Concomitant]
  10. CLOPIDOGREL BISULFATE [Concomitant]
  11. ISOSORBIDE DINITRATE [Concomitant]
  12. FOLIC ACID [Concomitant]
  13. ATORVASTATIN [Concomitant]
  14. ACETYLSALICULIC ACID [Concomitant]
  15. TIMOLOL MALEATE [Concomitant]
  16. PEPCID [Concomitant]
  17. MULTIVITAMIN [Concomitant]

REACTIONS (2)
  - PHARYNGOLARYNGEAL PAIN [None]
  - SENSITIVITY OF TEETH [None]
